FAERS Safety Report 16930157 (Version 2)
Quarter: 2019Q4

REPORT INFORMATION
  Report Type: Spontaneous
  Country: US (occurrence: US)
  Receive Date: 20191017
  Receipt Date: 20191025
  Transmission Date: 20200122
  Serious: Yes (Other)
  Sender: FDA-Public Use
  Company Number: US-BAUSCH-BL-2019-057680

PATIENT
  Age: 68 Year
  Sex: Male

DRUGS (1)
  1. DOXYCYLINE [Suspect]
     Active Substance: DOXYCYCLINE
     Indication: HELICOBACTER INFECTION
     Route: 065

REACTIONS (3)
  - Chronic gastritis [Unknown]
  - Thrombosis [Unknown]
  - Gastric mucosal lesion [Unknown]
